FAERS Safety Report 13961973 (Version 2)
Quarter: 2017Q4

REPORT INFORMATION
  Report Type: Report from Study
  Country: FR (occurrence: FR)
  Receive Date: 20170912
  Receipt Date: 20171030
  Transmission Date: 20180320
  Serious: Yes (Hospitalization, Other)
  Sender: FDA-Public Use
  Company Number: FR-GILEAD-2017-0292102

PATIENT
  Age: 51 Year
  Sex: Male

DRUGS (3)
  1. SOFOSBUVIR [Suspect]
     Active Substance: SOFOSBUVIR
     Indication: CHRONIC HEPATITIS C
     Dosage: 400
     Route: 048
     Dates: start: 20140514, end: 20140826
  2. INSULIN [Concomitant]
     Active Substance: INSULIN NOS
     Indication: DIABETES MELLITUS
     Dosage: UNK
     Dates: start: 201409
  3. COPEGUS [Suspect]
     Active Substance: RIBAVIRIN
     Indication: CHRONIC HEPATITIS C
     Dosage: 800
     Route: 048
     Dates: start: 20140514, end: 20140826

REACTIONS (6)
  - Hepatic encephalopathy [Unknown]
  - Varices oesophageal [Unknown]
  - Gastrointestinal haemorrhage [Unknown]
  - Treatment failure [Unknown]
  - Seizure [Recovered/Resolved]
  - Portal shunt procedure [Unknown]

NARRATIVE: CASE EVENT DATE: 201408
